FAERS Safety Report 8618279-9 (Version None)
Quarter: 2012Q3

REPORT INFORMATION
  Report Type: 
  Country: None (occurrence: None)
  Receive Date: 20120824
  Receipt Date: 20120815
  Transmission Date: 20120928
  Serious: Yes (Hospitalization)
  Sender: FDA-Public Use
  Company Number: US-BIOGENIDEC-2012BI032513

PATIENT
  Age: 65 Year
  Sex: Female
  Weight: 108 kg

DRUGS (7)
  1. VICODIN ES [Concomitant]
     Indication: PAIN
  2. ZOLOFT [Concomitant]
     Indication: DEPRESSION
  3. VESICARE [Concomitant]
     Indication: INCONTINENCE
  4. TYSABRI [Suspect]
     Indication: MULTIPLE SCLEROSIS
     Route: 042
     Dates: start: 20081103, end: 20120607
  5. NORVASC [Concomitant]
     Indication: HYPERTENSION
  6. GLUCOPHAGE [Concomitant]
     Indication: DIABETES MELLITUS
  7. HYDRALAZINE HCL [Concomitant]
     Indication: HYPERTENSION

REACTIONS (1)
  - GASTROINTESTINAL HAEMORRHAGE [None]
